FAERS Safety Report 18406084 (Version 1)
Quarter: 2020Q4

REPORT INFORMATION
  Report Type: Spontaneous
  Country: DE (occurrence: DE)
  Receive Date: 20201020
  Receipt Date: 20201020
  Transmission Date: 20210114
  Serious: Yes (Death)
  Sender: FDA-Public Use
  Company Number: DE-PFIZER INC-2016212637

PATIENT
  Age: 71 Year
  Sex: Male

DRUGS (3)
  1. VANCOMYCIN HCL [Suspect]
     Active Substance: VANCOMYCIN HYDROCHLORIDE
     Dosage: 1 G, (INITIAL DOSE)
     Route: 042
  2. CIPROFLOXACIN. [Suspect]
     Active Substance: CIPROFLOXACIN
     Indication: VARICELLA ZOSTER VIRUS INFECTION
     Dosage: UNK, DAILY
     Route: 042
  3. PIPERACILLIN W/SULBACTAM [Suspect]
     Active Substance: PIPERACILLIN\SULBACTAM
     Dosage: UNK, DAILY
     Route: 042

REACTIONS (1)
  - Drug ineffective [Fatal]
